FAERS Safety Report 5069453-2 (Version None)
Quarter: 2006Q3

REPORT INFORMATION
  Report Type: 
  Country: None (occurrence: None)
  Receive Date: 20060803
  Receipt Date: 20060720
  Transmission Date: 20061208
  Serious: Yes (Hospitalization)
  Sender: FDA-Public Use
  Company Number: US-AMGEN-US187249

PATIENT
  Sex: Male

DRUGS (1)
  1. ENBREL [Suspect]
     Indication: RHEUMATOID ARTHRITIS
     Route: 058
     Dates: start: 20030101

REACTIONS (7)
  - CHOLECYSTECTOMY [None]
  - CHOLELITHIASIS [None]
  - INJECTION SITE IRRITATION [None]
  - LIVER FUNCTION TEST ABNORMAL [None]
  - PROSTATECTOMY [None]
  - RENAL FAILURE [None]
  - STENT PLACEMENT [None]
